FAERS Safety Report 8250421-4 (Version None)
Quarter: 2012Q2

REPORT INFORMATION
  Report Type: 
  Country: None (occurrence: None)
  Receive Date: 20120402
  Receipt Date: 20120328
  Transmission Date: 20120825
  Serious: Yes (Death)
  Sender: FDA-Public Use
  Company Number: MX-ROCHE-1041638

PATIENT
  Sex: Female

DRUGS (1)
  1. XELODA [Suspect]
     Indication: BREAST CANCER
     Dosage: UNKNOWN
     Route: 048

REACTIONS (4)
  - COUGH [None]
  - PULMONARY OEDEMA [None]
  - INFLUENZA [None]
  - DYSPNOEA [None]
